FAERS Safety Report 7228068-8 (Version None)
Quarter: 2011Q1

REPORT INFORMATION
  Report Type: 
  Country: None (occurrence: None)
  Receive Date: 20110114
  Receipt Date: 20110111
  Transmission Date: 20110831
  Serious: Yes (Other)
  Sender: FDA-Public Use
  Company Number: CA-PFIZER INC-2011007038

PATIENT
  Age: 29 Year
  Sex: Male

DRUGS (1)
  1. CHAMPIX [Suspect]
     Dosage: UNK
     Dates: start: 20101025, end: 20101117

REACTIONS (15)
  - FATIGUE [None]
  - DECREASED APPETITE [None]
  - LOSS OF LIBIDO [None]
  - ANXIETY [None]
  - IMPATIENCE [None]
  - DISTURBANCE IN ATTENTION [None]
  - DECREASED INTEREST [None]
  - IRRITABILITY [None]
  - PSYCHIATRIC SYMPTOM [None]
  - INSOMNIA [None]
  - FEELING OF DESPAIR [None]
  - ABSTAINS FROM ALCOHOL [None]
  - BIPOLAR DISORDER [None]
  - ERECTILE DYSFUNCTION [None]
  - CRYING [None]
